FAERS Safety Report 5038164-1 (Version None)
Quarter: 2006Q2

REPORT INFORMATION
  Report Type: 
  Country: None (occurrence: None)
  Receive Date: 20060622
  Receipt Date: 20060609
  Transmission Date: 20061013
  Serious: Yes (Hospitalization, Other)
  Sender: FDA-Public Use
  Company Number: 2006074456

PATIENT
  Sex: Male

DRUGS (2)
  1. LYRICA [Suspect]
     Indication: ILL-DEFINED DISORDER
     Dosage: 150 MG (75 MG, 2 IN 1 D)
     Dates: start: 20060531
  2. ALL OTHER THERAPEUTIC PRODUCTS (ALL OTHER THERAPEUTIC PRODUCTS) [Concomitant]

REACTIONS (4)
  - BACK PAIN [None]
  - MUSCLE TWITCHING [None]
  - RENAL FAILURE ACUTE [None]
  - ROAD TRAFFIC ACCIDENT [None]
